FAERS Safety Report 22038410 (Version 1)
Quarter: 2023Q1

REPORT INFORMATION
  Report Type: Spontaneous
  Country: FR (occurrence: FR)
  Receive Date: 20230227
  Receipt Date: 20230227
  Transmission Date: 20230418
  Serious: Yes (Death, Hospitalization, Other)
  Sender: FDA-Public Use
  Company Number: FR-STERISCIENCE B.V.-2023-ST-000908

PATIENT
  Age: 72 Year
  Sex: Male

DRUGS (5)
  1. PIPERACILLIN SODIUM\TAZOBACTAM SODIUM [Suspect]
     Active Substance: PIPERACILLIN SODIUM\TAZOBACTAM SODIUM
     Indication: Pasteurella infection
     Dosage: UNK
     Route: 065
     Dates: start: 20210906
  2. VANCOMYCIN [Suspect]
     Active Substance: VANCOMYCIN
     Indication: Pasteurella infection
     Dosage: UNK
     Route: 065
     Dates: start: 20210906
  3. AMIKACIN [Suspect]
     Active Substance: AMIKACIN
     Indication: Pasteurella infection
     Dosage: UNK
     Route: 065
     Dates: start: 20210906
  4. NOREPINEPHRINE\NOREPINEPHRINE BITARTRATE [Suspect]
     Active Substance: NOREPINEPHRINE\NOREPINEPHRINE BITARTRATE
     Indication: Haemodynamic instability
     Dosage: UNK
     Route: 065
     Dates: start: 20210906
  5. DEXAMETHASONE [Concomitant]
     Active Substance: DEXAMETHASONE
     Indication: COVID-19
     Dosage: 6 MILLIGRAM, QD
     Route: 065
     Dates: start: 20210904

REACTIONS (2)
  - Drug ineffective [Fatal]
  - Off label use [Unknown]

NARRATIVE: CASE EVENT DATE: 20210901
